FAERS Safety Report 13732662 (Version 1)
Quarter: 2017Q3

REPORT INFORMATION
  Report Type: Spontaneous
  Country: FR (occurrence: FR)
  Receive Date: 20170707
  Receipt Date: 20170707
  Transmission Date: 20171127
  Serious: Yes (Hospitalization)
  Sender: FDA-Public Use
  Company Number: PHHY2017FR095449

PATIENT
  Age: 67 Year
  Sex: Female

DRUGS (1)
  1. PERINDOPRIL/INDAPAMIDE SANDOZ [Suspect]
     Active Substance: INDAPAMIDE\PERINDOPRIL
     Indication: PRODUCT USED FOR UNKNOWN INDICATION
     Dosage: 1 DF, QD
     Route: 065

REACTIONS (3)
  - Acne [Unknown]
  - Rash [Unknown]
  - Dysphagia [Unknown]

NARRATIVE: CASE EVENT DATE: 201706
